FAERS Safety Report 9456432 (Version 2)
Quarter: 2013Q3

REPORT INFORMATION
  Report Type: Spontaneous
  Country: ZA (occurrence: ZA)
  Receive Date: 20130813
  Receipt Date: 20130820
  Transmission Date: 20140515
  Serious: Yes (Hospitalization, Other)
  Sender: FDA-Public Use
  Company Number: ZA-PERRIGO-13ZA008320

PATIENT
  Age: 10 Year
  Sex: Male

DRUGS (3)
  1. IBUPROFEN 20 MG/ML CHILD BERRY 897 [Suspect]
     Indication: HEADACHE
     Dosage: 200 MG, TID
     Route: 048
     Dates: start: 198709
  2. RED BLOOD CELLS [Concomitant]
     Indication: ANAEMIA
     Dosage: 1 UNIT
     Route: 042
     Dates: start: 198709
  3. I.V. SOLUTIONS [Concomitant]
     Indication: PRODUCT USED FOR UNKNOWN INDICATION
     Route: 042

REACTIONS (10)
  - Renal failure acute [Recovered/Resolved]
  - Tubulointerstitial nephritis [Recovered/Resolved]
  - Oedema [Recovered/Resolved]
  - Confusional state [Recovered/Resolved]
  - Oliguria [Recovered/Resolved]
  - Grand mal convulsion [Recovered/Resolved]
  - Coma [Recovered/Resolved]
  - Hypertension [Recovered/Resolved]
  - Brain oedema [Recovered/Resolved]
  - Kidney enlargement [Recovered/Resolved]
